FAERS Safety Report 4564727-3 (Version None)
Quarter: 2005Q1

REPORT INFORMATION
  Report Type: 
  Country: None (occurrence: None)
  Receive Date: 20050128
  Receipt Date: 20050119
  Transmission Date: 20050727
  Serious: Yes (Hospitalization)
  Sender: FDA-Public Use
  Company Number: US-ABBOTT-05P-163-0287326-00

PATIENT
  Sex: Male

DRUGS (3)
  1. HUMIRA [Suspect]
     Indication: RHEUMATOID ARTHRITIS
     Route: 058
     Dates: start: 20040101, end: 20041001
  2. EPIDURAL STEROID BLOCK [Suspect]
     Indication: DRUG USE FOR UNKNOWN INDICATION
  3. LEFLUNOMIDE [Concomitant]
     Indication: RHEUMATOID ARTHRITIS
     Route: 048

REACTIONS (2)
  - OSTEOMYELITIS [None]
  - PAIN [None]
